FAERS Safety Report 23404590 (Version 2)
Quarter: 2024Q2

REPORT INFORMATION
  Report Type: Spontaneous
  Country: US (occurrence: US)
  Receive Date: 20240116
  Receipt Date: 20240417
  Transmission Date: 20240716
  Serious: Yes (Death, Other)
  Sender: FDA-Public Use
  Company Number: US-EXELIXIS-CABO-23071813

PATIENT
  Age: 63 Year
  Sex: Male

DRUGS (31)
  1. OPDIVO [Suspect]
     Active Substance: NIVOLUMAB
     Indication: Metastatic renal cell carcinoma
     Dosage: 240 MG, Q2WEEKS
     Route: 042
     Dates: start: 20230214
  2. OPDIVO [Suspect]
     Active Substance: NIVOLUMAB
     Dosage: 240 MG, Q2WEEKS
     Route: 042
     Dates: start: 20230302
  3. OPDIVO [Suspect]
     Active Substance: NIVOLUMAB
     Dosage: 240 MG, Q2WEEKS
     Route: 042
     Dates: start: 20230316
  4. OPDIVO [Suspect]
     Active Substance: NIVOLUMAB
     Dosage: 240 MG, Q2WEEKS
     Route: 042
     Dates: start: 20230330
  5. OPDIVO [Suspect]
     Active Substance: NIVOLUMAB
     Dosage: 240 MG, Q2WEEKS
     Route: 042
     Dates: start: 20230413
  6. OPDIVO [Suspect]
     Active Substance: NIVOLUMAB
     Dosage: 240 MG, Q2WEEKS
     Route: 042
     Dates: start: 20230427
  7. OPDIVO [Suspect]
     Active Substance: NIVOLUMAB
     Dosage: 240 MG, Q2WEEKS
     Route: 042
     Dates: start: 20230511
  8. OPDIVO [Suspect]
     Active Substance: NIVOLUMAB
     Dosage: 240 MG, Q2WEEKS
     Route: 042
     Dates: start: 20230525
  9. OPDIVO [Suspect]
     Active Substance: NIVOLUMAB
     Dosage: 240 MG, Q2WEEKS
     Route: 042
     Dates: start: 20230608
  10. OPDIVO [Suspect]
     Active Substance: NIVOLUMAB
     Dosage: 240 MG, Q2WEEKS
     Route: 042
     Dates: start: 20230622
  11. OPDIVO [Suspect]
     Active Substance: NIVOLUMAB
     Dosage: 240 MG, Q2WEEKS
     Route: 042
     Dates: start: 20230713
  12. OPDIVO [Suspect]
     Active Substance: NIVOLUMAB
     Dosage: 240 MG, Q2WEEKS
     Route: 042
     Dates: start: 20230727
  13. OPDIVO [Suspect]
     Active Substance: NIVOLUMAB
     Dosage: 240 MG, Q2WEEKS
     Route: 042
     Dates: start: 20230810
  14. OPDIVO [Suspect]
     Active Substance: NIVOLUMAB
     Dosage: 240 MG, Q2WEEKS
     Route: 042
     Dates: start: 20230825
  15. OPDIVO [Suspect]
     Active Substance: NIVOLUMAB
     Dosage: 240 MG, Q2WEEKS
     Route: 042
     Dates: start: 20230908, end: 20230922
  16. OPDIVO [Suspect]
     Active Substance: NIVOLUMAB
     Dosage: 240 MG, Q2WEEKS
     Route: 042
     Dates: start: 20230929, end: 20231101
  17. CABOMETYX [Suspect]
     Active Substance: CABOZANTINIB S-MALATE
     Indication: Metastatic renal cell carcinoma
     Dosage: 40 MG, QD
     Route: 048
     Dates: start: 20230215, end: 20231101
  18. VITAMIN C [Concomitant]
     Active Substance: ASCORBIC ACID
  19. LIPITOR [Concomitant]
     Active Substance: ATORVASTATIN CALCIUM
  20. FERATAB [Concomitant]
  21. GLUCOTROL XL [Concomitant]
     Active Substance: GLIPIZIDE
  22. GLUCOPHAGE [Concomitant]
     Active Substance: METFORMIN HYDROCHLORIDE
  23. VITAMINS NOS [Concomitant]
     Active Substance: VITAMINS
  24. PROCHLORPERAZINE EDISYLATE [Concomitant]
     Active Substance: PROCHLORPERAZINE EDISYLATE
     Indication: Nausea
  25. PROCHLORPERAZINE EDISYLATE [Concomitant]
     Active Substance: PROCHLORPERAZINE EDISYLATE
     Indication: Vomiting
  26. SELENIUM [Concomitant]
     Active Substance: SELENIUM
     Indication: Supplementation therapy
  27. STEGLATRO [Concomitant]
     Active Substance: ERTUGLIFLOZIN PIDOLATE
  28. ULTRAM [Concomitant]
     Active Substance: TRAMADOL HYDROCHLORIDE
     Indication: Pain
  29. VITAMIN E [Concomitant]
     Active Substance: .ALPHA.-TOCOPHEROL
     Indication: Supplementation therapy
  30. ASPIRIN [Concomitant]
     Active Substance: ASPIRIN
  31. VITAMIN D NOS [Concomitant]
     Active Substance: VITAMIN D NOS

REACTIONS (21)
  - Malignant pleural effusion [Unknown]
  - Pericardial effusion [Unknown]
  - Tricuspid valve incompetence [Unknown]
  - Malignant neoplasm progression [Fatal]
  - Metastases to pleura [Unknown]
  - Hyperkalaemia [Unknown]
  - Glossodynia [Recovering/Resolving]
  - Diarrhoea [Unknown]
  - Asthenia [Unknown]
  - Fatigue [Unknown]
  - Dysgeusia [Unknown]
  - Hypoalbuminaemia [Unknown]
  - Road traffic accident [Unknown]
  - Lymphadenopathy mediastinal [Unknown]
  - Hyperkeratosis [Unknown]
  - Hilar lymphadenopathy [Unknown]
  - Atelectasis [Unknown]
  - Nasal dryness [Unknown]
  - Intrapulmonary lymphadenopathy [Unknown]
  - Decubitus ulcer [Unknown]
  - Abdominal lymphadenopathy [Unknown]

NARRATIVE: CASE EVENT DATE: 20230522
